FAERS Safety Report 10712106 (Version 1)
Quarter: 2015Q1

REPORT INFORMATION
  Report Type: Spontaneous
  Country: US (occurrence: US)
  Receive Date: 20150114
  Receipt Date: 20150114
  Transmission Date: 20150721
  Serious: Yes (Other)
  Sender: FDA-Public Use
  Company Number: US-ASTRAZENECA-2015SE01692

PATIENT
  Age: 53 Year
  Sex: Male

DRUGS (3)
  1. INTEGRALAN [Concomitant]
  2. BRILINTA [Suspect]
     Active Substance: TICAGRELOR
     Indication: ACUTE MYOCARDIAL INFARCTION
     Route: 048
     Dates: start: 201410, end: 201410
  3. ASPIRIN. [Concomitant]
     Active Substance: ASPIRIN
     Route: 065

REACTIONS (4)
  - Adverse event [Unknown]
  - Coronary artery occlusion [Unknown]
  - Pain [Recovered/Resolved]
  - Acute myocardial infarction [Unknown]
